FAERS Safety Report 5418145-6 (Version None)
Quarter: 2007Q3

REPORT INFORMATION
  Report Type: 
  Country: None (occurrence: None)
  Receive Date: 20070817
  Receipt Date: 20070803
  Transmission Date: 20080115
  Serious: Yes (Life-Threatening)
  Sender: FDA-Public Use
  Company Number: GB-JNJFOC-20060505055

PATIENT
  Sex: Male
  Weight: 78 kg

DRUGS (10)
  1. ABCIXIMAB [Suspect]
     Route: 042
  2. ABCIXIMAB [Suspect]
     Indication: MYOCARDIAL INFARCTION
     Route: 042
  3. RETAVASE [Suspect]
     Indication: MYOCARDIAL INFARCTION
     Route: 042
  4. PLACEBO [Suspect]
     Indication: MYOCARDIAL INFARCTION
     Route: 042
  5. ASPIRIN [Concomitant]
     Indication: ANTIPLATELET THERAPY
     Route: 048
  6. FUROSEMIDE [Concomitant]
     Indication: DIURETIC THERAPY
     Route: 042
  7. BISOPROLOL [Concomitant]
     Indication: CARDIAC DISORDER
     Route: 048
  8. CLOPIDOGREL [Concomitant]
     Indication: ANTIPLATELET THERAPY
     Route: 048
  9. ATROVASTATIN [Concomitant]
     Indication: BLOOD CHOLESTEROL
     Route: 048
  10. LANSOPRAZOLE [Concomitant]
     Indication: DYSPEPSIA
     Route: 048

REACTIONS (2)
  - ARTERIAL INJURY [None]
  - PERICARDIAL HAEMORRHAGE [None]
